FAERS Safety Report 5913226-2 (Version None)
Quarter: 2008Q4

REPORT INFORMATION
  Report Type: 
  Country: None (occurrence: None)
  Receive Date: 20081009
  Receipt Date: 20080929
  Transmission Date: 20090506
  Serious: Yes (Other)
  Sender: FDA-Public Use
  Company Number: US-BAYER-200835013NA

PATIENT
  Age: 62 Year
  Sex: Female
  Weight: 65 kg

DRUGS (2)
  1. SORAFENIB OR PLACEBO [Suspect]
     Indication: BREAST CANCER METASTATIC
     Dosage: TOTAL DAILY DOSE: 800 MG  UNIT DOSE: 200 MG
     Route: 048
     Dates: start: 20080408, end: 20080527
  2. GEMZAR [Suspect]
     Indication: BREAST CANCER METASTATIC
     Dosage: AS USED: 1000 MG/M2
     Route: 042
     Dates: start: 20080408

REACTIONS (1)
  - PULMONARY EMBOLISM [None]
